FAERS Safety Report 5144587-2 (Version None)
Quarter: 2006Q4

REPORT INFORMATION
  Report Type: 
  Country: None (occurrence: None)
  Receive Date: 20061031
  Receipt Date: 20061016
  Transmission Date: 20070319
  Serious: Yes (Other)
  Sender: FDA-Public Use
  Company Number: S06-FRA-04517-01

PATIENT
  Age: 82 Year
  Sex: Female

DRUGS (4)
  1. MEMANTINE HCL [Suspect]
  2. MEMANTINE HCL [Suspect]
  3. EXELON [Suspect]
  4. EXELON [Suspect]

REACTIONS (3)
  - DISINHIBITION [None]
  - HALLUCINATIONS, MIXED [None]
  - RENAL FAILURE [None]
